FAERS Safety Report 23140631 (Version 2)
Quarter: 2023Q4

REPORT INFORMATION
  Report Type: Spontaneous
  Country: US (occurrence: None)
  Receive Date: 20231103
  Receipt Date: 20231212
  Transmission Date: 20240110
  Serious: No
  Sender: FDA-Public Use
  Company Number: 2023A249071

PATIENT

DRUGS (1)
  1. CALQUENCE [Suspect]
     Active Substance: ACALABRUTINIB
     Route: 048
     Dates: start: 20230121, end: 20230913

REACTIONS (3)
  - Skin discolouration [Unknown]
  - Abdominal pain upper [Unknown]
  - Drug ineffective [Unknown]
